FAERS Safety Report 14433401 (Version 1)
Quarter: 2018Q1

REPORT INFORMATION
  Report Type: Spontaneous
  Country: US (occurrence: US)
  Receive Date: 20180124
  Receipt Date: 20180124
  Transmission Date: 20180509
  Serious: No
  Sender: FDA-Public Use
  Company Number: US-PCCINC-T201700511

PATIENT

DRUGS (4)
  1. LIORESAL [Suspect]
     Active Substance: BACLOFEN
     Indication: MUSCLE SPASTICITY
     Dosage: 200 MCG/DAY
     Route: 037
     Dates: start: 20170119
  2. LIORESAL [Suspect]
     Active Substance: BACLOFEN
     Indication: CEREBRAL PALSY
  3. GABLOFEN [Suspect]
     Active Substance: BACLOFEN
     Indication: CEREBRAL PALSY
  4. GABLOFEN [Suspect]
     Active Substance: BACLOFEN
     Indication: MUSCLE SPASTICITY
     Dosage: 200 MCG/DAY
     Route: 037
     Dates: start: 20140122, end: 20170119

REACTIONS (2)
  - Orthopaedic procedure [Unknown]
  - Muscle spasticity [Recovered/Resolved]

NARRATIVE: CASE EVENT DATE: 20170119
